FAERS Safety Report 20629273 (Version 1)
Quarter: 2022Q1

REPORT INFORMATION
  Report Type: Spontaneous
  Country: PT (occurrence: PT)
  Receive Date: 20220323
  Receipt Date: 20220323
  Transmission Date: 20220423
  Serious: Yes (Death, Other)
  Sender: FDA-Public Use
  Company Number: PT-PFM-2022-02468

PATIENT
  Age: 86 Year
  Sex: Male

DRUGS (2)
  1. BRAFTOVI [Suspect]
     Active Substance: ENCORAFENIB
     Indication: BRAF V600E mutation positive
     Dosage: UNK
     Route: 065
     Dates: start: 202105
  2. MEKTOVI [Suspect]
     Active Substance: BINIMETINIB
     Indication: BRAF V600E mutation positive
     Dosage: UNK
     Route: 065
     Dates: start: 202105

REACTIONS (3)
  - COVID-19 pneumonia [Fatal]
  - Acute kidney injury [Unknown]
  - Diarrhoea [Unknown]
